FAERS Safety Report 7241650-7 (Version None)
Quarter: 2011Q1

REPORT INFORMATION
  Report Type: 
  Country: None (occurrence: None)
  Receive Date: 20110124
  Receipt Date: 20110112
  Transmission Date: 20110831
  Serious: Yes (Other)
  Sender: FDA-Public Use
  Company Number: PHHY2011ES02335

PATIENT
  Age: 44 Year
  Sex: Male

DRUGS (4)
  1. CITALOPRAM HYDROBROMIDE [Suspect]
     Dosage: UNK, UNK
  2. CARBAMAZEPINE [Suspect]
     Dosage: UNK, UNK
  3. MIRTAZAPINE [Suspect]
     Dosage: UNK{ UNK
  4. OLANZAPINE [Suspect]
     Dosage: 30 MG, QD

REACTIONS (12)
  - BIOPSY SKIN ABNORMAL [None]
  - SKIN LESION [None]
  - DYSLIPIDAEMIA [None]
  - HYPERTROPHIC SCAR [None]
  - KOEBNER PHENOMENON [None]
  - SKIN HYPERPIGMENTATION [None]
  - HYPERTRIGLYCERIDAEMIA [None]
  - XANTHOMA [None]
  - HEPATIC STEATOSIS [None]
  - HYPERCHOLESTEROLAEMIA [None]
  - SKIN MASS [None]
  - HEPATOSPLENOMEGALY [None]
